FAERS Safety Report 5235463-5 (Version None)
Quarter: 2007Q1

REPORT INFORMATION
  Report Type: 
  Country: None (occurrence: None)
  Receive Date: 20070212
  Receipt Date: 20070130
  Transmission Date: 20070707
  Serious: Yes (Other)
  Sender: FDA-Public Use
  Company Number: PHNU2007DE00622

PATIENT
  Age: 42 Year
  Sex: Male

DRUGS (3)
  1. TRILEPTAL [Suspect]
     Dosage: UNK, UNK
     Route: 048
  2. VALPROATE SODIUM [Concomitant]
  3. PRIMIDONE [Concomitant]

REACTIONS (2)
  - PNEUMONIA [None]
  - PULMONARY FIBROSIS [None]
